FAERS Safety Report 11645460 (Version 3)
Quarter: 2015Q4

REPORT INFORMATION
  Report Type: Spontaneous
  Country: FR (occurrence: FR)
  Receive Date: 20151020
  Receipt Date: 20151118
  Transmission Date: 20160304
  Serious: Yes (Hospitalization, Other)
  Sender: FDA-Public Use
  Company Number: FR-PFIZER INC-2015348811

PATIENT
  Age: 63 Year
  Sex: Female

DRUGS (14)
  1. EPHEDRINE. [Suspect]
     Active Substance: EPHEDRINE
     Dosage: 6 MG, SINGLE
     Route: 042
     Dates: start: 20110127, end: 20110127
  2. LEVOTHYROX [Concomitant]
     Active Substance: LEVOTHYROXINE
     Dosage: 100 ?G, 1X/DAY
     Route: 048
  3. LAROXYL [Concomitant]
     Active Substance: AMITRIPTYLINE
     Dosage: 50MG IN THE MORNING, 75MG IN THE EVENING
     Route: 048
  4. CRESTOR [Concomitant]
     Active Substance: ROSUVASTATIN CALCIUM
     Dosage: 10 MG, DAILY
     Route: 048
  5. SOLU-MEDROL [Suspect]
     Active Substance: METHYLPREDNISOLONE SODIUM SUCCINATE
     Dosage: 60 MG, SINGLE
     Route: 042
     Dates: start: 20110127, end: 20110127
  6. SUFENTANIL [Suspect]
     Active Substance: SUFENTANIL
     Dosage: 15 ?G, SINGLE
     Route: 042
     Dates: start: 20110127, end: 20110127
  7. SEROPLEX [Concomitant]
     Active Substance: ESCITALOPRAM OXALATE
     Dosage: 10 MG, 1X/DAY
     Route: 048
  8. MIDAZOLAM [Suspect]
     Active Substance: MIDAZOLAM\MIDAZOLAM HYDROCHLORIDE
     Dosage: 3 MG, SINGLE
     Route: 042
     Dates: start: 20110127, end: 20110127
  9. XANAX [Concomitant]
     Active Substance: ALPRAZOLAM
     Dosage: 0.25 MG, 2X/DAY
     Route: 048
  10. STRUCTUM /02117803/ [Concomitant]
     Dosage: 500 MG, 1X/DAY
     Route: 048
  11. PROPOFOL. [Suspect]
     Active Substance: PROPOFOL
     Dosage: 120 MG, SINGLE
     Route: 042
     Dates: start: 20110127, end: 20110127
  12. NIMBEX [Suspect]
     Active Substance: CISATRACURIUM BESYLATE
     Dosage: 10 ?G, SINGLE
     Route: 042
     Dates: start: 20110127, end: 20110127
  13. CEFAZOLINE [Suspect]
     Active Substance: CEFAZOLIN SODIUM
     Dosage: 2 G, SINGLE
     Route: 042
     Dates: start: 20110127, end: 20110127
  14. STILNOX [Concomitant]
     Active Substance: ZOLPIDEM TARTRATE
     Dosage: 10 MG, 1X/DAY
     Route: 048

REACTIONS (2)
  - Pancreatitis acute [Recovered/Resolved]
  - Ileus [Recovered/Resolved]

NARRATIVE: CASE EVENT DATE: 20110128
